FAERS Safety Report 8798432 (Version 2)
Quarter: 2012Q4

REPORT INFORMATION
  Report Type: 
  Country: US (occurrence: US)
  Receive Date: 20120920
  Receipt Date: 20121018
  Transmission Date: 20130627
  Serious: Yes (Death)
  Sender: FDA-Public Use
  Company Number: US-ROCHE-1129268

PATIENT
  Age: 55 Year
  Sex: Female

DRUGS (1)
  1. AVASTIN [Suspect]
     Indication: PANCREATIC CARCINOMA METASTATIC
     Route: 042
     Dates: start: 20090817, end: 20091019

REACTIONS (8)
  - Death [Fatal]
  - Pancreatic carcinoma metastatic [Fatal]
  - Metastases to liver [Fatal]
  - Metastases to bone [Fatal]
  - Sepsis [Fatal]
  - Bacteraemia [Fatal]
  - Colitis [Fatal]
  - Malnutrition [Fatal]
